FAERS Safety Report 10345602 (Version 1)
Quarter: 2014Q3

REPORT INFORMATION
  Report Type: Spontaneous
  Country: US (occurrence: None)
  Receive Date: 20140725
  Receipt Date: 20140725
  Transmission Date: 20150326
  Serious: Yes (Other)
  Sender: FDA-Public Use
  Company Number: None

PATIENT
  Age: 57 Year
  Sex: Male
  Weight: 96.62 kg

DRUGS (7)
  1. RIBAVARIN [Concomitant]
     Active Substance: RIBAVIRIN
  2. MIRTAZAPINE. [Concomitant]
     Active Substance: MIRTAZAPINE
  3. SOVALDI [Suspect]
     Active Substance: SOFOSBUVIR
     Indication: HEPATITIS C
     Dosage: 1 DOSE QD ORAL
     Route: 048
  4. HALOPERIDOL DECANOATE. [Concomitant]
     Active Substance: HALOPERIDOL DECANOATE
  5. IBUPROFEN. [Concomitant]
     Active Substance: IBUPROFEN
  6. DIPHENHYDRAMINE [Concomitant]
     Active Substance: DIPHENHYDRAMINE
  7. LITHIUM [Concomitant]
     Active Substance: LITHIUM CARBONATE

REACTIONS (6)
  - Grandiosity [None]
  - Hypomania [None]
  - Speech disorder [None]
  - Akathisia [None]
  - Pressure of speech [None]
  - Impulsive behaviour [None]

NARRATIVE: CASE EVENT DATE: 20140521
